FAERS Safety Report 9691873 (Version 1)
Quarter: 2013Q4

REPORT INFORMATION
  Report Type: Spontaneous
  Country: JP (occurrence: JP)
  Receive Date: 20131117
  Receipt Date: 20131117
  Transmission Date: 20140711
  Serious: Yes (Hospitalization, Disabling)
  Sender: FDA-Public Use
  Company Number: JP-MYLANLABS-2013S1025295

PATIENT
  Age: 15 Year
  Sex: Female

DRUGS (4)
  1. ETOPOSIDE [Suspect]
     Indication: ALVEOLAR RHABDOMYOSARCOMA
     Dosage: 100MG/M2
     Route: 042
  2. IFOSFAMIDE [Suspect]
     Indication: ALVEOLAR RHABDOMYOSARCOMA
     Dosage: 1800MG/M2
     Route: 042
  3. DACTINOMYCIN [Suspect]
     Indication: ALVEOLAR RHABDOMYOSARCOMA
     Dosage: 0.015MG/KG
     Route: 042
  4. VINCRISTINE [Suspect]
     Indication: ALVEOLAR RHABDOMYOSARCOMA
     Dosage: 1.5MG/M2; ON D1 AND D8
     Route: 042

REACTIONS (6)
  - Rhabdomyolysis [Recovering/Resolving]
  - Respiratory failure [Recovering/Resolving]
  - Renal failure acute [Recovering/Resolving]
  - Hepatic function abnormal [Recovering/Resolving]
  - Disseminated intravascular coagulation [Recovering/Resolving]
  - Altered state of consciousness [Recovering/Resolving]
